FAERS Safety Report 23146459 (Version 1)
Quarter: 2023Q4

REPORT INFORMATION
  Report Type: Spontaneous
  Country: US (occurrence: US)
  Receive Date: 20231104
  Receipt Date: 20231104
  Transmission Date: 20240109
  Serious: No
  Sender: FDA-Public Use
  Company Number: US-TEVA-2023-US-2940662

PATIENT
  Sex: Female

DRUGS (1)
  1. AUSTEDO [Suspect]
     Active Substance: DEUTETRABENAZINE
     Indication: Product used for unknown indication
     Dosage: 48 MILLIGRAM DAILY;
     Route: 065

REACTIONS (5)
  - Depression [Unknown]
  - Crying [Unknown]
  - Migraine [Unknown]
  - Fatigue [Unknown]
  - Adverse event [Unknown]
